FAERS Safety Report 4641273-X (Version None)
Quarter: 2005Q2

REPORT INFORMATION
  Report Type: 
  Country: None (occurrence: None)
  Receive Date: 20050420
  Receipt Date: 20050420
  Transmission Date: 20051028
  Serious: Yes (Hospitalization)
  Sender: FDA-Public Use
  Company Number: None

PATIENT
  Age: 41 Year
  Sex: Male

DRUGS (2)
  1. VIREAD [Suspect]
     Indication: ACQUIRED IMMUNODEFICIENCY SYNDROME
     Dosage: 300 MG PO Q DAY   ~ 1 YR PRIOR TO ADMISSION
     Route: 048
  2. VIREAD [Suspect]
     Indication: HIV INFECTION
     Dosage: 300 MG PO Q DAY   ~ 1 YR PRIOR TO ADMISSION
     Route: 048

REACTIONS (1)
  - RENAL FAILURE ACUTE [None]
